FAERS Safety Report 9786287 (Version 1)
Quarter: 2013Q4

REPORT INFORMATION
  Report Type: Spontaneous
  Country: FR (occurrence: FR)
  Receive Date: 20131227
  Receipt Date: 20131227
  Transmission Date: 20140711
  Serious: Yes (Hospitalization)
  Sender: FDA-Public Use
  Company Number: FR-US-EMD SERONO, INC.-7257522

PATIENT
  Sex: Female

DRUGS (3)
  1. OVITRELLE [Suspect]
     Indication: IN VITRO FERTILISATION
     Route: 030
     Dates: start: 20130121
  2. PUREGON /01348901/ [Suspect]
     Indication: IN VITRO FERTILISATION
     Route: 058
     Dates: start: 20130105, end: 20130112
  3. ORGALUTRAN /01453701/ [Suspect]
     Indication: IN VITRO FERTILISATION
     Dosage: 0.25 MG/0.5 ML
     Route: 058
     Dates: start: 20130113, end: 20130118

REACTIONS (3)
  - Dyspnoea [Recovered/Resolved]
  - Ascites [Recovered/Resolved]
  - Ovarian hyperstimulation syndrome [Recovered/Resolved]
